FAERS Safety Report 7994476-0 (Version None)
Quarter: 2011Q4

REPORT INFORMATION
  Report Type: 
  Country: None (occurrence: None)
  Receive Date: 20111123
  Receipt Date: 20111111
  Transmission Date: 20120403
  Serious: No
  Sender: FDA-Public Use
  Company Number: 337101

PATIENT
  Age: 67 Year
  Sex: Female

DRUGS (2)
  1. VICTOZA [Suspect]
     Indication: TYPE 2 DIABETES MELLITUS
     Dosage: 1.2 MG, QD, SUBCUTANEOUS
     Route: 058
     Dates: start: 20110609
  2. VICTOZA [Suspect]

REACTIONS (12)
  - VULVOVAGINAL BURNING SENSATION [None]
  - BLOOD GLUCOSE INCREASED [None]
  - RASH GENERALISED [None]
  - BLOOD GLUCOSE DECREASED [None]
  - PAIN OF SKIN [None]
  - INCREASED APPETITE [None]
  - DYSURIA [None]
  - CONSTIPATION [None]
  - VULVOVAGINAL PRURITUS [None]
  - THYROID DISORDER [None]
  - VULVOVAGINAL DISCOMFORT [None]
  - NAUSEA [None]
